FAERS Safety Report 9701893 (Version 2)
Quarter: 2013Q4

REPORT INFORMATION
  Report Type: Spontaneous
  Country: AU (occurrence: AU)
  Receive Date: 20131121
  Receipt Date: 20131231
  Transmission Date: 20140711
  Serious: Yes (Other)
  Sender: FDA-Public Use
  Company Number: AU-ASTRAZENECA-2013SE83462

PATIENT
  Sex: Female

DRUGS (1)
  1. SEROQUEL IR [Suspect]
     Indication: BIPOLAR DISORDER
     Route: 048

REACTIONS (2)
  - Thyroid neoplasm [Unknown]
  - Thyroid disorder [Unknown]
